FAERS Safety Report 8548775-4 (Version None)
Quarter: 2012Q3

REPORT INFORMATION
  Report Type: 
  Country: None (occurrence: None)
  Receive Date: 20120730
  Receipt Date: 20120724
  Transmission Date: 20120928
  Serious: Yes (Death, Hospitalization)
  Sender: FDA-Public Use
  Company Number: FR-BRISTOL-MYERS SQUIBB COMPANY-16670887

PATIENT
  Age: 52 Year
  Sex: Male

DRUGS (9)
  1. METHYLPREDNISOLONE [Concomitant]
     Dosage: ROUTE:IV
     Route: 048
     Dates: start: 20120611, end: 20120611
  2. GAVISCON [Concomitant]
     Route: 048
     Dates: start: 20120609
  3. ACETAMINOPHEN [Concomitant]
     Route: 048
     Dates: start: 20120611
  4. IPILIMUMAB [Suspect]
     Indication: MALIGNANT MELANOMA
     Dosage: 21-21MAY2012,11-11JUN2012
     Route: 042
     Dates: start: 20120521, end: 20120611
  5. NEFOPAM HCL [Concomitant]
     Route: 042
     Dates: start: 20120611, end: 20120611
  6. PANTOPRAZOLE [Concomitant]
     Route: 048
     Dates: start: 20120609
  7. MOVIPREP [Concomitant]
     Route: 048
     Dates: start: 20120609
  8. INDAPAMIDE [Concomitant]
     Route: 048
     Dates: start: 20120417
  9. LEVETIRACETAM [Concomitant]
     Route: 048
     Dates: start: 20120608

REACTIONS (5)
  - CEREBRAL HAEMORRHAGE [None]
  - METASTASES TO CENTRAL NERVOUS SYSTEM [None]
  - NAUSEA [None]
  - BRAIN OEDEMA [None]
  - HEADACHE [None]
